FAERS Safety Report 22304765 (Version 1)
Quarter: 2023Q2

REPORT INFORMATION
  Report Type: Spontaneous
  Country: US (occurrence: None)
  Receive Date: 20230509
  Receipt Date: 20230509
  Transmission Date: 20230721
  Serious: Yes (Disabling)
  Sender: FDA-Public Use
  Company Number: None

PATIENT
  Age: 48 Year
  Sex: Female
  Weight: 74.25 kg

DRUGS (2)
  1. LIALDA [Suspect]
     Active Substance: MESALAMINE
     Indication: Colitis ulcerative
     Dosage: FREQUENCY : DAILY;?
     Route: 048
     Dates: start: 19990601, end: 20230429
  2. MESALAMINE [Concomitant]
     Active Substance: MESALAMINE

REACTIONS (4)
  - Glomerular filtration rate decreased [None]
  - Dehydration [None]
  - Nephropathy toxic [None]
  - Chronic kidney disease [None]

NARRATIVE: CASE EVENT DATE: 20230425
